FAERS Safety Report 5314020-6 (Version None)
Quarter: 2007Q2

REPORT INFORMATION
  Report Type: 
  Country: None (occurrence: None)
  Receive Date: 20070501
  Receipt Date: 20070418
  Transmission Date: 20071010
  Serious: Yes (Hospitalization, Other)
  Sender: FDA-Public Use
  Company Number: US-ELI_LILLY_AND_COMPANY-US200704003990

PATIENT
  Age: 70 Year
  Sex: Male

DRUGS (13)
  1. BYETTA [Suspect]
     Indication: DIABETES MELLITUS NON-INSULIN-DEPENDENT
     Dosage: 5 UG, 2/D
     Route: 058
     Dates: start: 20060801, end: 20060901
  2. BYETTA [Suspect]
     Dosage: 10 UG, 2/D
     Route: 058
     Dates: start: 20060901
  3. EFFEXOR [Concomitant]
     Dosage: 150 MG, DAILY (1/D)
     Route: 048
     Dates: start: 20050101
  4. FLOMAX [Concomitant]
     Dosage: 0.8 MG, DAILY (1/D)
     Route: 048
  5. CELEBREX [Concomitant]
     Dosage: 200 MG, DAILY (1/D)
     Route: 048
  6. NEXIUM [Concomitant]
     Dosage: 40 MG, DAILY (1/D)
     Route: 048
  7. NADOLOL [Concomitant]
     Indication: BLOOD PRESSURE
     Dosage: 80 MG, DAILY (1/D)
     Route: 048
  8. PLAVIX [Concomitant]
     Dosage: 75 MG, DAILY (1/D)
     Route: 048
  9. DITROPAN [Concomitant]
     Indication: PROSTATE CANCER
     Dosage: 15 MG, DAILY (1/D)
     Route: 048
  10. VICODIN [Concomitant]
     Dosage: UNK D/F, DAILY (1/D)
     Route: 048
  11. GLUCOTROL [Concomitant]
     Indication: DIABETES MELLITUS NON-INSULIN-DEPENDENT
     Dosage: 5 MG, DAILY (1/D)
     Route: 048
  12. LASIX [Concomitant]
     Dosage: 40 MG, DAILY (1/D)
     Route: 048
     Dates: start: 20060101, end: 20070401
  13. POTASSIUM ACETATE [Concomitant]
     Dosage: 10 MG, DAILY (1/D)
     Route: 048
     Dates: start: 20060101, end: 20070401

REACTIONS (8)
  - ACCIDENTAL OVERDOSE [None]
  - ASTHENIA [None]
  - BLOOD GLUCOSE DECREASED [None]
  - CARDIAC DISORDER [None]
  - DIURETIC EFFECT [None]
  - FEELING ABNORMAL [None]
  - HYPOKINESIA [None]
  - LOSS OF CONSCIOUSNESS [None]
